FAERS Safety Report 13794763 (Version 1)
Quarter: 2017Q3

REPORT INFORMATION
  Report Type: Spontaneous
  Country: MY (occurrence: MY)
  Receive Date: 20170726
  Receipt Date: 20170726
  Transmission Date: 20171127
  Serious: Yes (Death, Hospitalization, Other)
  Sender: FDA-Public Use
  Company Number: MY-JNJFOC-20170717801

PATIENT

DRUGS (2)
  1. LOPERAMIDE [Suspect]
     Active Substance: LOPERAMIDE
     Route: 065
  2. LOPERAMIDE [Suspect]
     Active Substance: LOPERAMIDE
     Indication: DIARRHOEA
     Route: 065

REACTIONS (22)
  - Death [Fatal]
  - Syncope [Unknown]
  - Throat tightness [Unknown]
  - Rash [Unknown]
  - Pruritus [Unknown]
  - Nausea [Unknown]
  - Ventricular arrhythmia [Unknown]
  - Intentional product misuse [Unknown]
  - Dizziness [Unknown]
  - Face oedema [Unknown]
  - Torsade de pointes [Unknown]
  - Anaphylactic reaction [Unknown]
  - Stomatitis [Unknown]
  - Dyspnoea [Unknown]
  - Oculogyric crisis [Unknown]
  - Overdose [Fatal]
  - Electrocardiogram QT prolonged [Unknown]
  - Dysaesthesia [Unknown]
  - Cardiac arrest [Unknown]
  - Ventricular tachycardia [Unknown]
  - Drug interaction [Unknown]
  - Oedema mouth [Unknown]
